FAERS Safety Report 14327553 (Version 2)
Quarter: 2018Q1

REPORT INFORMATION
  Report Type: Spontaneous
  Country: US (occurrence: US)
  Receive Date: 20171227
  Receipt Date: 20180125
  Transmission Date: 20180509
  Serious: No
  Sender: FDA-Public Use
  Company Number: US-PFIZER INC-2017544845

PATIENT
  Age: 62 Year
  Sex: Male
  Weight: 88.45 kg

DRUGS (3)
  1. BACLOFEN. [Concomitant]
     Active Substance: BACLOFEN
     Indication: MUSCLE SPASMS
     Dosage: 10 MG, FOUR TIMES A DAY
     Route: 048
  2. LYRICA [Suspect]
     Active Substance: PREGABALIN
     Indication: NERVE INJURY
     Dosage: 300 MG, TWICE A DAY
     Route: 048
     Dates: start: 2015, end: 20171216
  3. TRAZODONE [Concomitant]
     Active Substance: TRAZODONE HYDROCHLORIDE
     Indication: SLEEP DISORDER
     Dosage: 50 MG ONE TO TWO TABLETS BY MOUTH AT BEDTIME AS NEEDED
     Route: 048

REACTIONS (9)
  - Drug withdrawal syndrome [Unknown]
  - Feeling abnormal [Unknown]
  - Pain in extremity [Unknown]
  - Drug effect incomplete [Unknown]
  - Pain [Unknown]
  - Thinking abnormal [Unknown]
  - Hyperventilation [Unknown]
  - Dizziness [Unknown]
  - Neck pain [Unknown]

NARRATIVE: CASE EVENT DATE: 201712
